FAERS Safety Report 6906956-7 (Version None)
Quarter: 2010Q3

REPORT INFORMATION
  Report Type: 
  Country: None (occurrence: None)
  Receive Date: 20100804
  Receipt Date: 20080104
  Transmission Date: 20110219
  Serious: No
  Sender: FDA-Public Use
  Company Number: US-PFIZER INC-2008001624

PATIENT
  Sex: Male

DRUGS (2)
  1. NARDIL [Suspect]
  2. PROTEIN SUPPLEMENTS [Suspect]
     Dates: start: 20080101

REACTIONS (3)
  - BLOOD PRESSURE INCREASED [None]
  - FEELING ABNORMAL [None]
  - FOOD INTERACTION [None]
